FAERS Safety Report 23371725 (Version 3)
Quarter: 2025Q2

REPORT INFORMATION
  Report Type: Report from Study
  Country: CA (occurrence: CA)
  Receive Date: 20240105
  Receipt Date: 20250409
  Transmission Date: 20250716
  Serious: Yes (Other)
  Sender: TAKEDA
  Company Number: CA-TAKEDA-2022TUS038989

PATIENT
  Age: 85 Year
  Sex: Female

DRUGS (14)
  1. VEDOLIZUMAB [Suspect]
     Active Substance: VEDOLIZUMAB
     Indication: Crohn^s disease
  2. VEDOLIZUMAB [Suspect]
     Active Substance: VEDOLIZUMAB
  3. VEDOLIZUMAB [Suspect]
     Active Substance: VEDOLIZUMAB
  4. VEDOLIZUMAB [Suspect]
     Active Substance: VEDOLIZUMAB
  5. VEDOLIZUMAB [Suspect]
     Active Substance: VEDOLIZUMAB
  6. Salofalk [Concomitant]
  7. Salofalk [Concomitant]
  8. PREDNISONE [Concomitant]
     Active Substance: PREDNISONE
  9. PREDNISONE [Concomitant]
     Active Substance: PREDNISONE
  10. PANTOPRAZOLE [Concomitant]
     Active Substance: PANTOPRAZOLE
  11. CITALOPRAM [Concomitant]
     Active Substance: CITALOPRAM
  12. PROLIA [Concomitant]
     Active Substance: DENOSUMAB
  13. SYSTANE (HYPROMELLOSE 2910 (4000 MPA.S)) [Concomitant]
     Active Substance: HYPROMELLOSE 2910 (4000 MPA.S)
  14. VITAMIN B12 [Concomitant]
     Active Substance: CYANOCOBALAMIN

REACTIONS (6)
  - Fall [Recovered/Resolved]
  - Humerus fracture [Not Recovered/Not Resolved]
  - Patella fracture [Recovered/Resolved]
  - Diarrhoea [Unknown]
  - Stress fracture [Not Recovered/Not Resolved]
  - Intervertebral disc protrusion [Unknown]

NARRATIVE: CASE EVENT DATE: 20231124
